FAERS Safety Report 4819606-0 (Version None)
Quarter: 2005Q4

REPORT INFORMATION
  Report Type: 
  Country: None (occurrence: None)
  Receive Date: 20051103
  Receipt Date: 20051025
  Transmission Date: 20060501
  Serious: Yes (Hospitalization)
  Sender: FDA-Public Use
  Company Number: US-AMGEN-US156252

PATIENT
  Sex: Female

DRUGS (9)
  1. PROCRIT [Suspect]
     Indication: ANAEMIA
     Dates: start: 20051006, end: 20051006
  2. ATENOLOL [Concomitant]
  3. PAXIL [Concomitant]
  4. LOVASTATIN [Concomitant]
  5. PLAVIX [Concomitant]
  6. TRICOR [Concomitant]
  7. NEXIUM [Concomitant]
  8. NITRO [Concomitant]
  9. TORSEMIDE [Concomitant]

REACTIONS (1)
  - ANAPHYLACTIC REACTION [None]
